FAERS Safety Report 26165670 (Version 1)
Quarter: 2025Q4

REPORT INFORMATION
  Report Type: Other
  Country: US (occurrence: US)
  Receive Date: 20251216
  Receipt Date: 20251216
  Transmission Date: 20260118
  Serious: No
  Sender: SCIEGEN PHARMACEUTICALS INC
  Company Number: US-SCIEGENP-2025SCSPO00396

PATIENT

DRUGS (2)
  1. GABAPENTIN [Suspect]
     Active Substance: GABAPENTIN
     Indication: Epilepsy
     Route: 065
  2. GABAPENTIN [Suspect]
     Active Substance: GABAPENTIN
     Indication: Neuralgia

REACTIONS (8)
  - Irritability [Unknown]
  - Photophobia [Recovered/Resolved]
  - Hyperacusis [Recovered/Resolved]
  - Insomnia [Unknown]
  - Anxiety [Recovered/Resolved]
  - Pain [Unknown]
  - Product substitution issue [Unknown]
  - Therapeutic response decreased [Unknown]
